FAERS Safety Report 6662956-6 (Version None)
Quarter: 2010Q2

REPORT INFORMATION
  Report Type: 
  Country: None (occurrence: None)
  Receive Date: 20100401
  Receipt Date: 20100111
  Transmission Date: 20101027
  Serious: Yes (Hospitalization, Other)
  Sender: FDA-Public Use
  Company Number: GB-TEVA-228901ISR

PATIENT
  Sex: Male

DRUGS (14)
  1. PREDNISOLONE [Suspect]
     Indication: PROSTATE CANCER
     Route: 048
     Dates: start: 20081002
  2. ABIRATERONE ACETATE OR PLACEBO [Suspect]
     Indication: PROSTATE CANCER
     Dates: start: 20081002, end: 20081205
  3. DICLOFENAC [Concomitant]
     Indication: CANCER PAIN
     Route: 048
     Dates: start: 20031110, end: 20081204
  4. TRAMADOL HCL [Concomitant]
     Indication: CANCER PAIN
     Route: 048
     Dates: start: 20031009, end: 20081202
  5. PARACETAMOL [Concomitant]
     Indication: CANCER PAIN
     Route: 048
     Dates: start: 20080408, end: 20081202
  6. TAMSULOSIN HCL [Concomitant]
     Indication: URINARY RETENTION
     Route: 048
     Dates: start: 20050120
  7. SALBUTAMOL [Concomitant]
     Indication: COUGH
     Route: 055
     Dates: start: 20081024
  8. SALBUTAMOL [Concomitant]
     Indication: NASOPHARYNGITIS
  9. SALBUTAMOL [Concomitant]
     Indication: ASTHMA
  10. BECLOMETASONE DIPROPIONATE [Concomitant]
     Indication: COUGH
     Route: 055
     Dates: start: 20081024
  11. BECLOMETASONE DIPROPIONATE [Concomitant]
     Indication: NASOPHARYNGITIS
  12. BECLOMETASONE DIPROPIONATE [Concomitant]
     Indication: ASTHMA
  13. PANADEINE CO [Concomitant]
     Indication: CANCER PAIN
     Dosage: 30/500, 2 TABS TID
     Route: 048
     Dates: start: 20081112
  14. GOSERELIN [Concomitant]
     Indication: PROSTATE CANCER
     Route: 058
     Dates: start: 20081002

REACTIONS (1)
  - DYSPNOEA [None]
